FAERS Safety Report 16226508 (Version 1)
Quarter: 2019Q2

REPORT INFORMATION
  Report Type: Report from Study
  Country: IT (occurrence: IT)
  Receive Date: 20190423
  Receipt Date: 20190423
  Transmission Date: 20190711
  Serious: Yes (Other)
  Sender: FDA-Public Use
  Company Number: IT-PFIZER INC-2019165519

PATIENT
  Age: 43 Year
  Sex: Male

DRUGS (2)
  1. CARDURA [Suspect]
     Active Substance: DOXAZOSIN MESYLATE
     Indication: HYPERTENSION
     Dosage: 1 DF, 1X/DAY
     Route: 048
  2. COVERLAM [Suspect]
     Active Substance: AMLODIPINE BESYLATE\PERINDOPRIL ARGININE
     Indication: HYPERTENSION
     Dosage: 1 DF, 1X/DAY
     Route: 048

REACTIONS (4)
  - Drug ineffective [Recovering/Resolving]
  - Epistaxis [Recovering/Resolving]
  - Blood pressure increased [Recovering/Resolving]
  - Tachycardia [Recovering/Resolving]

NARRATIVE: CASE EVENT DATE: 20190306
